FAERS Safety Report 18334963 (Version 3)
Quarter: 2021Q1

REPORT INFORMATION
  Report Type: Spontaneous
  Country: ES (occurrence: ES)
  Receive Date: 20201001
  Receipt Date: 20210105
  Transmission Date: 20210419
  Serious: No
  Sender: FDA-Public Use
  Company Number: ES-LUPIN PHARMACEUTICALS INC.-2020-06369

PATIENT
  Age: 7 Year
  Sex: Female
  Weight: 2.7 kg

DRUGS (3)
  1. METHYLPHENIDATE HYDROCHLORIDE TABLET [Suspect]
     Active Substance: METHYLPHENIDATE HYDROCHLORIDE
     Dosage: 20 MILLIGRAM, QD
     Route: 065
  2. METHYLPHENIDATE HYDROCHLORIDE TABLET [Suspect]
     Active Substance: METHYLPHENIDATE HYDROCHLORIDE
     Dosage: 18 MILLIGRAM, QD
     Route: 048
  3. METHYLPHENIDATE HYDROCHLORIDE TABLET [Suspect]
     Active Substance: METHYLPHENIDATE HYDROCHLORIDE
     Indication: ATTENTION DEFICIT HYPERACTIVITY DISORDER
     Dosage: 10 MILLIGRAM, QD
     Route: 048

REACTIONS (1)
  - Alopecia areata [Recovered/Resolved]
